FAERS Safety Report 12622699 (Version 1)
Quarter: 2016Q3

REPORT INFORMATION
  Report Type: Report from Study
  Country: US (occurrence: US)
  Receive Date: 20160804
  Receipt Date: 20160804
  Transmission Date: 20161109
  Serious: Yes (Hospitalization)
  Sender: FDA-Public Use
  Company Number: US-JNJFOC-20160801482

PATIENT
  Sex: Female

DRUGS (11)
  1. FELODIPINE. [Concomitant]
     Active Substance: FELODIPINE
  2. ZYRTEC [Concomitant]
     Active Substance: CETIRIZINE HYDROCHLORIDE
  3. ZANTAC [Concomitant]
     Active Substance: RANITIDINE HYDROCHLORIDE
  4. ASPIRIN. [Concomitant]
     Active Substance: ASPIRIN
  5. FLONASE [Concomitant]
     Active Substance: FLUTICASONE PROPIONATE
  6. TERCONAZOLE. [Concomitant]
     Active Substance: TERCONAZOLE
  7. VITAMIN C [Concomitant]
     Active Substance: ASCORBIC ACID
  8. LOSARTAN. [Concomitant]
     Active Substance: LOSARTAN
  9. ESTRACE [Concomitant]
     Active Substance: ESTRADIOL
  10. CALCIUM [Concomitant]
     Active Substance: CALCIUM
  11. IMBRUVICA [Suspect]
     Active Substance: IBRUTINIB
     Indication: CHRONIC LYMPHOCYTIC LEUKAEMIA
     Route: 048
     Dates: start: 20150307

REACTIONS (3)
  - Urinary tract infection [Unknown]
  - Bacteraemia [Unknown]
  - Dehydration [Unknown]
